FAERS Safety Report 10481547 (Version 2)
Quarter: 2014Q4

REPORT INFORMATION
  Report Type: Spontaneous
  Country: CA (occurrence: CA)
  Receive Date: 20140929
  Receipt Date: 20141203
  Transmission Date: 20150528
  Serious: Yes (Other)
  Sender: FDA-Public Use
  Company Number: CA-ELI_LILLY_AND_COMPANY-CA201409006339

PATIENT
  Age: 13 Year
  Sex: Female
  Weight: 56.8 kg

DRUGS (3)
  1. HUMATROPE [Suspect]
     Active Substance: SOMATROPIN
     Indication: GROWTH RETARDATION
     Dosage: 0.05 MG/KG, QD
     Route: 065
     Dates: start: 201007, end: 20140916
  2. LUPRON [Concomitant]
     Active Substance: LEUPROLIDE ACETATE
     Dosage: UNK, UNKNOWN
     Route: 065
     Dates: start: 201203, end: 201303
  3. BIOTIN [Concomitant]
     Active Substance: BIOTIN
     Dosage: UNK, UNKNOWN
     Route: 065

REACTIONS (2)
  - Pituitary tumour [Not Recovered/Not Resolved]
  - Cerebral atrophy [Unknown]
